FAERS Safety Report 16575065 (Version 1)
Quarter: 2019Q3

REPORT INFORMATION
  Report Type: Report from Study
  Country: None (occurrence: TN)
  Receive Date: 20190715
  Receipt Date: 20190715
  Transmission Date: 20191004
  Serious: Yes (Disabling)
  Sender: FDA-Public Use
  Company Number: TN-ABBVIE-19K-160-2850486-00

PATIENT
  Age: 62 Year
  Sex: Male

DRUGS (8)
  1. HUMIRA [Suspect]
     Active Substance: ADALIMUMAB
     Dosage: LOADING DOSE
     Route: 058
     Dates: start: 20190415, end: 20190415
  2. CARDOX [Concomitant]
     Indication: DYSURIA
     Dates: start: 2018
  3. HUMIRA [Suspect]
     Active Substance: ADALIMUMAB
     Indication: CROHN^S DISEASE
     Route: 058
     Dates: start: 20190101, end: 20190101
  4. HUMIRA [Suspect]
     Active Substance: ADALIMUMAB
     Dosage: LOADING DOSE
     Route: 058
     Dates: start: 20190401, end: 20190401
  5. EOLIDE EASY FLOW [Concomitant]
     Indication: DYSPNOEA
  6. NOTOS TWELVE EASY FLOW [Concomitant]
     Indication: DYSPNOEA
  7. HUMIRA [Suspect]
     Active Substance: ADALIMUMAB
     Route: 058
     Dates: start: 20190429, end: 20190528
  8. HUMIRA [Suspect]
     Active Substance: ADALIMUMAB
     Dosage: LOADING DOSE
     Route: 058
     Dates: start: 20190318, end: 20190318

REACTIONS (10)
  - Calcium deficiency [Unknown]
  - Pain [Recovering/Resolving]
  - Arthralgia [Recovering/Resolving]
  - Blood magnesium decreased [Unknown]
  - Paraesthesia [Not Recovered/Not Resolved]
  - Intentional product misuse [Unknown]
  - Product communication issue [Unknown]
  - Mobility decreased [Not Recovered/Not Resolved]
  - Neck pain [Not Recovered/Not Resolved]
  - Pain in extremity [Recovering/Resolving]

NARRATIVE: CASE EVENT DATE: 2019
